FAERS Safety Report 11277167 (Version 3)
Quarter: 2015Q4

REPORT INFORMATION
  Report Type: Report from Study
  Country: US (occurrence: US)
  Receive Date: 20150716
  Receipt Date: 20151214
  Transmission Date: 20160304
  Serious: Yes (Other)
  Sender: FDA-Public Use
  Company Number: US-ALEXION PHARMACEUTICALS INC-A201502595

PATIENT
  Sex: Male

DRUGS (1)
  1. SOLIRIS [Suspect]
     Active Substance: ECULIZUMAB
     Indication: PRODUCT USED FOR UNKNOWN INDICATION
     Route: 042

REACTIONS (14)
  - Headache [Unknown]
  - Loss of consciousness [Unknown]
  - Varicose vein [Unknown]
  - Pyrexia [Unknown]
  - Hypoaesthesia [Unknown]
  - Fatigue [Unknown]
  - Heart rate increased [Unknown]
  - Loss of consciousness [Unknown]
  - Chromaturia [Unknown]
  - Sinusitis [Recovering/Resolving]
  - Palpitations [Unknown]
  - Paraesthesia [Unknown]
  - Arthralgia [Unknown]
  - Cough [Unknown]

NARRATIVE: CASE EVENT DATE: 201507
